FAERS Safety Report 14545974 (Version 1)
Quarter: 2018Q1

REPORT INFORMATION
  Report Type: Report from Study
  Country: FR (occurrence: FR)
  Receive Date: 20180219
  Receipt Date: 20180219
  Transmission Date: 20180509
  Serious: Yes (Other)
  Sender: FDA-Public Use
  Company Number: FR-ROCHE-2073207

PATIENT

DRUGS (4)
  1. RITUXIMAB. [Suspect]
     Active Substance: RITUXIMAB
     Indication: SJOGREN^S SYNDROME
     Dosage: MAINTENANCE TREATMENT PROPOSED FOR 1-2 YEARS (ONE INJECTION OF RITUXIMAB 375 MG/M2 DAY 1, EVERY 3 MO
     Route: 042
  2. BENDAMUSTINE [Suspect]
     Active Substance: BENDAMUSTINE
     Indication: EXTRANODAL MARGINAL ZONE B-CELL LYMPHOMA (MALT TYPE)
     Dosage: DAY 1 AND 2
     Route: 065
  3. RITUXIMAB. [Suspect]
     Active Substance: RITUXIMAB
     Indication: EXTRANODAL MARGINAL ZONE B-CELL LYMPHOMA (MALT TYPE)
     Dosage: DAY 1
     Route: 042
  4. BENDAMUSTINE [Suspect]
     Active Substance: BENDAMUSTINE
     Indication: SJOGREN^S SYNDROME

REACTIONS (19)
  - Gastrointestinal disorder [Unknown]
  - Hypogammaglobulinaemia [Unknown]
  - Asthenia [Unknown]
  - Weight decreased [Unknown]
  - Mental disorder [Unknown]
  - Thrombocytopenia [Unknown]
  - Neutropenia [Unknown]
  - Skin disorder [Unknown]
  - Infection [Unknown]
  - Nervous system disorder [Unknown]
  - Headache [Unknown]
  - Lung disorder [Unknown]
  - Cardiovascular disorder [Unknown]
  - Lymphopenia [Unknown]
  - Cholestasis [Unknown]
  - Decreased appetite [Unknown]
  - Cell death [Unknown]
  - Arthropathy [Unknown]
  - Anaemia [Unknown]
